FAERS Safety Report 6419091-1 (Version None)
Quarter: 2009Q4

REPORT INFORMATION
  Report Type: 
  Country: None (occurrence: None)
  Receive Date: 20091027
  Receipt Date: 20091013
  Transmission Date: 20100525
  Serious: Yes (Death)
  Sender: FDA-Public Use
  Company Number: 2009AP004156

PATIENT
  Sex: Male

DRUGS (6)
  1. OMEPRAZOLE [Suspect]
  2. ACYCLOVIR [Suspect]
     Indication: HERPES ZOSTER
     Dosage: 800 MG; IV; TID
     Route: 042
     Dates: start: 20090824, end: 20090825
  3. VELCADE [Suspect]
     Indication: MULTIPLE MYELOMA
     Dosage: 1.3 MG; QW
     Dates: start: 20090724, end: 20090819
  4. ATENOLOL [Concomitant]
  5. DOXAZOSIN MESYLATE [Concomitant]
  6. RAMIPRIL [Concomitant]

REACTIONS (4)
  - CONFUSIONAL STATE [None]
  - HYPOTENSION [None]
  - PULMONARY OEDEMA [None]
  - RENAL FAILURE ACUTE [None]
